FAERS Safety Report 8852968 (Version 1)
Quarter: 2012Q4

REPORT INFORMATION
  Report Type: Report from Study
  Country: DE (occurrence: DE)
  Receive Date: 20121022
  Receipt Date: 20121022
  Transmission Date: 20130627
  Serious: Yes (Life-Threatening, Hospitalization)
  Sender: FDA-Public Use
  Company Number: DE-TEVA-365996USA

PATIENT
  Age: 68 Year
  Sex: Male

DRUGS (12)
  1. BENDAMUSTINE [Suspect]
     Indication: NON-HODGKIN^S LYMPHOMA
     Dosage: cyclic
     Route: 042
     Dates: start: 20110406, end: 20110414
  2. RITUXIMAB [Suspect]
     Indication: NON-HODGKIN^S LYMPHOMA
     Dosage: cyclic
     Route: 042
     Dates: start: 20110405, end: 20110414
  3. CORDAREX [Concomitant]
  4. RAMIPRIL [Concomitant]
  5. BISOPROLOL [Concomitant]
  6. TOREM [Concomitant]
  7. ALDACTONE [Concomitant]
  8. BRILIQUE (TICAGRELOR) [Concomitant]
  9. PLETAL [Concomitant]
  10. MOVICOL [Concomitant]
  11. OMPERIDONE [Concomitant]
  12. PANTOPRAZOLE [Concomitant]

REACTIONS (3)
  - Sepsis [Recovering/Resolving]
  - Diarrhoea [Unknown]
  - Myocardial infarction [Unknown]
